FAERS Safety Report 13180355 (Version 2)
Quarter: 2018Q1

REPORT INFORMATION
  Report Type: Spontaneous
  Country: FR (occurrence: FR)
  Receive Date: 20170202
  Receipt Date: 20180307
  Transmission Date: 20180508
  Serious: Yes (Other)
  Sender: FDA-Public Use
  Company Number: FR-JNJFOC-20170200018

PATIENT
  Sex: Male
  Weight: 75 kg

DRUGS (2)
  1. INFLECTRA [Suspect]
     Active Substance: INFLIXIMAB-DYYB
     Indication: ANKYLOSING SPONDYLITIS
     Route: 042
     Dates: start: 20160331
  2. REMICADE [Suspect]
     Active Substance: INFLIXIMAB
     Indication: ANKYLOSING SPONDYLITIS
     Route: 042
     Dates: start: 2002, end: 20160107

REACTIONS (3)
  - Product use issue [Unknown]
  - Off label use [Unknown]
  - Cutaneous lymphoma [Recovered/Resolved]

NARRATIVE: CASE EVENT DATE: 2002
